FAERS Safety Report 16045060 (Version 1)
Quarter: 2019Q1

REPORT INFORMATION
  Report Type: Spontaneous
  Country: RU (occurrence: RU)
  Receive Date: 20190307
  Receipt Date: 20190307
  Transmission Date: 20190418
  Serious: Yes (Other)
  Sender: FDA-Public Use
  Company Number: RU-ROCHE-2271349

PATIENT
  Sex: Female

DRUGS (8)
  1. HERCEPTIN [Suspect]
     Active Substance: TRASTUZUMAB
     Indication: BREAST CANCER
     Dosage: 4 COURSES OF CHEMOTHERAPY
     Route: 065
     Dates: start: 201412, end: 201505
  2. HERCEPTIN [Suspect]
     Active Substance: TRASTUZUMAB
     Route: 065
     Dates: start: 201506, end: 201512
  3. PERTUZUMAB. [Suspect]
     Active Substance: PERTUZUMAB
     Indication: BREAST CANCER
     Route: 065
     Dates: start: 201702, end: 201710
  4. DOCETAXEL. [Concomitant]
     Active Substance: DOCETAXEL
     Route: 065
     Dates: start: 201702, end: 201706
  5. HERCEPTIN [Suspect]
     Active Substance: TRASTUZUMAB
     Dosage: 6 COURSES
     Route: 065
     Dates: start: 201702, end: 201710
  6. KADCYLA [Suspect]
     Active Substance: ADO-TRASTUZUMAB EMTANSINE
     Indication: BREAST CANCER
     Route: 042
     Dates: start: 201803, end: 201901
  7. DOCETAXEL. [Concomitant]
     Active Substance: DOCETAXEL
     Indication: BREAST CANCER
     Route: 065
     Dates: start: 201412, end: 201505
  8. FULVESTRANT. [Concomitant]
     Active Substance: FULVESTRANT
     Indication: BREAST CANCER
     Route: 065
     Dates: start: 201706, end: 201710

REACTIONS (7)
  - Metastases to liver [Recovered/Resolved]
  - Transaminases increased [Unknown]
  - Metastases to lung [Recovering/Resolving]
  - Metastases to liver [Not Recovered/Not Resolved]
  - Breast cancer recurrent [Recovered/Resolved]
  - Metastases to lymph nodes [Recovered/Resolved]
  - Ascites [Unknown]

NARRATIVE: CASE EVENT DATE: 2016
